FAERS Safety Report 13338701 (Version 1)
Quarter: 2017Q1

REPORT INFORMATION
  Report Type: Spontaneous
  Country: US (occurrence: US)
  Receive Date: 20170315
  Receipt Date: 20170315
  Transmission Date: 20170428
  Serious: Yes (Other)
  Sender: FDA-Public Use
  Company Number: US-SA-2017SA037350

PATIENT
  Age: 66 Year
  Sex: Female
  Weight: 63.5 kg

DRUGS (17)
  1. CALCIUM [Concomitant]
     Active Substance: CALCIUM
  2. NOVOLOG [Suspect]
     Active Substance: INSULIN ASPART
     Indication: TYPE 2 DIABETES MELLITUS
     Dosage: DOSE- 10 UNITES WITH EVRY MEAL AND NOVOLOG SLIDING SCALE
     Route: 065
  3. HYDROCODONE BITARTRATE/PARACETAMOL [Concomitant]
  4. VITAMIN D [Concomitant]
     Active Substance: CHOLECALCIFEROL
  5. NITROGLYCERIN. [Concomitant]
     Active Substance: NITROGLYCERIN
  6. LEVOTHYROXINE. [Concomitant]
     Active Substance: LEVOTHYROXINE
  7. PAROXETINE. [Concomitant]
     Active Substance: PAROXETINE
  8. ALBUTEROL. [Concomitant]
     Active Substance: ALBUTEROL
  9. DULOXETINE. [Concomitant]
     Active Substance: DULOXETINE
  10. GABAPENTIN. [Concomitant]
     Active Substance: GABAPENTIN
  11. PANTOPRAZOLE [Concomitant]
     Active Substance: PANTOPRAZOLE SODIUM
  12. LANTUS [Suspect]
     Active Substance: INSULIN GLARGINE
     Indication: TYPE 2 DIABETES MELLITUS
     Dosage: DOSE:33 UNIT(S)
     Route: 058
  13. ADVAIR HFA [Concomitant]
     Active Substance: FLUTICASONE PROPIONATE\SALMETEROL XINAFOATE
  14. MAGNESIUM [Concomitant]
     Active Substance: MAGNESIUM
  15. ALPRAZOLAM. [Concomitant]
     Active Substance: ALPRAZOLAM
  16. LABETALOL [Concomitant]
     Active Substance: LABETALOL\LABETALOL HYDROCHLORIDE
  17. SIMVASTATIN. [Concomitant]
     Active Substance: SIMVASTATIN

REACTIONS (10)
  - Muscle spasms [Unknown]
  - Arthralgia [Unknown]
  - Condition aggravated [Unknown]
  - Chest injury [Unknown]
  - Diabetic retinopathy [Unknown]
  - Glaucoma [Unknown]
  - Diabetic nephropathy [Unknown]
  - Neck injury [Unknown]
  - Hypoglycaemic unconsciousness [Recovered/Resolved]
  - Fall [Unknown]

NARRATIVE: CASE EVENT DATE: 2015
